FAERS Safety Report 14590703 (Version 1)
Quarter: 2018Q1

REPORT INFORMATION
  Report Type: Report from Study
  Country: None (occurrence: ES)
  Receive Date: 20180302
  Receipt Date: 20180302
  Transmission Date: 20180509
  Serious: Yes (Other)
  Sender: FDA-Public Use
  Company Number: ES-BIOVITRUM-2012ES0391

PATIENT
  Age: 18 Year
  Sex: Male
  Weight: 85 kg

DRUGS (2)
  1. ORFADIN [Suspect]
     Active Substance: NITISINONE
     Dates: start: 20130327
  2. ORFADIN [Suspect]
     Active Substance: NITISINONE
     Indication: TYROSINAEMIA
     Dates: start: 19960814, end: 20130326

REACTIONS (4)
  - Amino acid level decreased [Unknown]
  - Mental impairment [Unknown]
  - Amino acid level increased [Unknown]
  - Succinylacetone increased [Unknown]

NARRATIVE: CASE EVENT DATE: 20140624
